FAERS Safety Report 20669014 (Version 1)
Quarter: 2022Q2

REPORT INFORMATION
  Report Type: Spontaneous
  Country: US (occurrence: None)
  Receive Date: 20220404
  Receipt Date: 20220404
  Transmission Date: 20220720
  Serious: No
  Sender: FDA-Public Use
  Company Number: 2022A118508

PATIENT
  Age: 24973 Day
  Sex: Female
  Weight: 77.1 kg

DRUGS (1)
  1. BUDESONIDE\FORMOTEROL\GLYCOPYRRONIUM [Suspect]
     Active Substance: BUDESONIDE\FORMOTEROL\GLYCOPYRRONIUM
     Indication: Chronic obstructive pulmonary disease
     Dosage: BREZTRI 160/9/4.8MCG 2 PUFFS TWICE A DAY
     Route: 055
     Dates: start: 20220216, end: 202203

REACTIONS (6)
  - Hypersensitivity [Unknown]
  - Chapped lips [Unknown]
  - Lip exfoliation [Unknown]
  - Lip swelling [Unknown]
  - Lip injury [Unknown]
  - Intentional dose omission [Unknown]

NARRATIVE: CASE EVENT DATE: 20220226
